FAERS Safety Report 21597174 (Version 1)
Quarter: 2022Q4

REPORT INFORMATION
  Report Type: Spontaneous
  Country: US (occurrence: US)
  Receive Date: 20221115
  Receipt Date: 20221115
  Transmission Date: 20230113
  Serious: No
  Sender: FDA-Public Use
  Company Number: US-AMNEAL PHARMACEUTICALS-2022-AMRX-01106

PATIENT
  Weight: 101.6 kg

DRUGS (1)
  1. ISOTRETINOIN [Suspect]
     Active Substance: ISOTRETINOIN
     Indication: Product used for unknown indication
     Route: 048

REACTIONS (10)
  - Scab [Unknown]
  - Skin exfoliation [Unknown]
  - Hot flush [Unknown]
  - Pruritus [Unknown]
  - Dry skin [Unknown]
  - Blood cholesterol increased [Unknown]
  - Blood triglycerides increased [Unknown]
  - Erythema [Unknown]
  - Headache [Unknown]
  - Eczema [Unknown]
